FAERS Safety Report 26184904 (Version 1)
Quarter: 2025Q4

REPORT INFORMATION
  Report Type: Spontaneous
  Country: US (occurrence: US)
  Receive Date: 20251222
  Receipt Date: 20251222
  Transmission Date: 20260118
  Serious: Yes (Hospitalization)
  Sender: ROCHE
  Company Number: US-ROCHE-10000461718

PATIENT
  Age: 58 Year
  Sex: Female

DRUGS (7)
  1. ATEZOLIZUMAB [Suspect]
     Active Substance: ATEZOLIZUMAB
     Indication: Metastatic malignant melanoma
  2. ATEZOLIZUMAB [Suspect]
     Active Substance: ATEZOLIZUMAB
     Indication: Glucose tolerance impaired
  3. COBIMETINIB [Concomitant]
     Active Substance: COBIMETINIB
     Indication: Glucose tolerance impaired
  4. COBIMETINIB [Concomitant]
     Active Substance: COBIMETINIB
     Indication: Metastatic malignant melanoma
  5. VEMURAFENIB [Concomitant]
     Active Substance: VEMURAFENIB
     Indication: Glucose tolerance impaired
  6. VEMURAFENIB [Concomitant]
     Active Substance: VEMURAFENIB
     Indication: Metastatic malignant melanoma
  7. FLUCONAZOLE [Concomitant]
     Active Substance: FLUCONAZOLE
     Indication: Oral candidiasis

REACTIONS (1)
  - Diabetic ketoacidosis [Recovered/Resolved]
